FAERS Safety Report 9694009 (Version 3)
Quarter: 2013Q4

REPORT INFORMATION
  Report Type: Spontaneous
  Country: CA (occurrence: CA)
  Receive Date: 20131118
  Receipt Date: 20131213
  Transmission Date: 20140711
  Serious: Yes (Hospitalization, Other)
  Sender: FDA-Public Use
  Company Number: CA-BAXTER-2013BAX042355

PATIENT
  Age: 71 Year
  Sex: Female

DRUGS (2)
  1. DIANEAL PD4 SOLUTION WITH 2.5% DEXTROSE AND 2.5 MEQ/L CALCIUM [Suspect]
     Indication: RENAL FAILURE
     Route: 033
     Dates: start: 2009, end: 20131017
  2. EXTRANEAL [Suspect]
     Indication: RENAL FAILURE
     Route: 033
     Dates: start: 2009, end: 20131017

REACTIONS (3)
  - Post procedural haemorrhage [Recovered/Resolved]
  - Myocardial infarction [Not Recovered/Not Resolved]
  - Peritonitis bacterial [Not Recovered/Not Resolved]
